FAERS Safety Report 5204871-0 (Version None)
Quarter: 2007Q1

REPORT INFORMATION
  Report Type: 
  Country: None (occurrence: None)
  Receive Date: 20070110
  Receipt Date: 20060817
  Transmission Date: 20070707
  Serious: No
  Sender: FDA-Public Use
  Company Number: US-BRISTOL-MYERS SQUIBB COMPANY-13479902

PATIENT
  Age: 84 Year
  Sex: Male

DRUGS (3)
  1. ABILIFY [Suspect]
     Indication: HALLUCINATION
     Route: 048
     Dates: start: 20060802
  2. ARICEPT [Suspect]
     Indication: AMNESIA
     Route: 048
     Dates: start: 20060802
  3. HYDRODIURIL [Concomitant]

REACTIONS (1)
  - DROOLING [None]
